FAERS Safety Report 14767952 (Version 1)
Quarter: 2018Q2

REPORT INFORMATION
  Report Type: Other
  Country: US (occurrence: US)
  Receive Date: 20180417
  Receipt Date: 20180417
  Transmission Date: 20180711
  Serious: Yes (Life-Threatening, Hospitalization, Other)
  Sender: FDA-Public Use
  Company Number: US-DEXPHARM-20180257

PATIENT
  Age: 62 Year
  Sex: Male
  Weight: 189 kg

DRUGS (7)
  1. CHLORTHALIDONE. [Suspect]
     Active Substance: CHLORTHALIDONE
  2. ATORVASTATIN [Suspect]
     Active Substance: ATORVASTATIN
  3. ASPIRIN. [Suspect]
     Active Substance: ASPIRIN
  4. LISINOPRIL. [Suspect]
     Active Substance: LISINOPRIL
  5. OMEPRAZOLE. [Suspect]
     Active Substance: OMEPRAZOLE
  6. AMLODIPINE [Suspect]
     Active Substance: AMLODIPINE BESYLATE
  7. ALLOPURINOL. [Suspect]
     Active Substance: ALLOPURINOL

REACTIONS (2)
  - Angioedema [Recovered/Resolved]
  - Hypovolaemic shock [Recovered/Resolved]
